FAERS Safety Report 7153573-2 (Version None)
Quarter: 2010Q4

REPORT INFORMATION
  Report Type: 
  Country: None (occurrence: None)
  Receive Date: 20101208
  Receipt Date: 20101208
  Transmission Date: 20110411
  Serious: Yes (Other)
  Sender: FDA-Public Use
  Company Number: None

PATIENT
  Sex: Female

DRUGS (1)
  1. COPAXONE [Suspect]
     Dosage: 20 MG DAILY SUBCUTANEOUSLY
     Route: 058
     Dates: start: 20100801, end: 20100901

REACTIONS (4)
  - CHEST PAIN [None]
  - DYSPNOEA [None]
  - FEELING HOT [None]
  - FLUSHING [None]
